FAERS Safety Report 13048959 (Version 1)
Quarter: 2016Q4

REPORT INFORMATION
  Report Type: Spontaneous
  Country: US (occurrence: US)
  Receive Date: 20161221
  Receipt Date: 20161221
  Transmission Date: 20170207
  Serious: No
  Sender: FDA-Public Use
  Company Number: US-TEVA-716490ACC

PATIENT
  Age: 15 Year
  Sex: Female
  Weight: 49.94 kg

DRUGS (1)
  1. PLAN B ONE-STEP [Suspect]
     Active Substance: LEVONORGESTREL
     Indication: POST COITAL CONTRACEPTION
     Dates: start: 20161121, end: 20161121

REACTIONS (4)
  - Dysmenorrhoea [Not Recovered/Not Resolved]
  - Prescription drug used without a prescription [Unknown]
  - Menstruation delayed [Not Recovered/Not Resolved]
  - Intentional product misuse [Unknown]

NARRATIVE: CASE EVENT DATE: 20161121
